FAERS Safety Report 8954215 (Version 1)
Quarter: 2012Q4

REPORT INFORMATION
  Report Type: 
  Country: FR (occurrence: US)
  Receive Date: 20121207
  Receipt Date: 20121207
  Transmission Date: 20130627
  Serious: Yes (Death)
  Sender: FDA-Public Use
  Company Number: US-ARROW-2012-21662

PATIENT
  Age: 51 Year
  Sex: Female

DRUGS (12)
  1. PREDNISONE (UNKNOWN) [Suspect]
     Indication: SJOGREN^S SYNDROME
     Dosage: 5 mg, UNK
     Route: 065
  2. PREDNISONE (UNKNOWN) [Suspect]
     Dosage: 60 mg, UNK
     Route: 065
  3. PREDNISONE (UNKNOWN) [Suspect]
     Dosage: 30 mg, UNK
     Route: 065
  4. CARBOPLATIN [Suspect]
     Indication: OROPHARYNGEAL CANCER STAGE III
     Dosage: 45 mg, UNK
     Route: 065
  5. METHYLPREDNISOLONE ACETATE (WATSON LABORATORIES) [Suspect]
     Indication: SJOGREN^S SYNDROME
     Dosage: 100 mg, unknown
     Route: 042
  6. METHYLPREDNISOLONE ACETATE [Suspect]
     Indication: RHEUMATOID ARTHRITIS
  7. METHOTREXATE [Suspect]
     Indication: SJOGREN^S SYNDROME
     Dosage: 15 mg, 1/week
     Route: 065
  8. METHOTREXATE [Suspect]
     Dosage: 20 mg, 1/week
     Route: 065
  9. RITUXIMAB [Suspect]
     Indication: SJOGREN^S SYNDROME
     Dosage: 1000 mg, UNK
     Route: 042
  10. RITUXIMAB [Suspect]
     Indication: SJOGREN^S SYNDROME
  11. INFLIXIMAB [Suspect]
     Indication: SJOGREN^S SYNDROME
     Dosage: 5 mg/kg milligram(s)/kilogram  dosage(s)=1 Interval= 8 Week(s)
  12. CETUXIMAB [Suspect]
     Indication: OROPHARYNGEAL CANCER STAGE III
     Dosage: 375 milligram(s)/sq. meter  Interval= 1 Week(s)
     Route: 065

REACTIONS (1)
  - Progressive multifocal leukoencephalopathy [Fatal]
